FAERS Safety Report 5215416-3 (Version None)
Quarter: 2007Q1

REPORT INFORMATION
  Report Type: 
  Country: None (occurrence: None)
  Receive Date: 20070116
  Receipt Date: 20070102
  Transmission Date: 20070707
  Serious: Yes (Congenital Anomaly)
  Sender: FDA-Public Use
  Company Number: 2006S1000229

PATIENT
  Sex: Male
  Weight: 2.9 kg

DRUGS (1)
  1. ACITRETIN [Suspect]
     Dosage: TRPL
     Route: 064
     Dates: end: 20060101

REACTIONS (13)
  - ACOUSTIC STIMULATION TESTS ABNORMAL [None]
  - ANOMALY OF MIDDLE EAR CONGENITAL [None]
  - CONGENITAL FOOT MALFORMATION [None]
  - CONGENITAL HAND MALFORMATION [None]
  - DRUG EXPOSURE DURING PREGNANCY [None]
  - LIMB MALFORMATION [None]
  - MUSCLE CONTRACTURE [None]
  - NEONATAL DISORDER [None]
  - NEONATAL PNEUMONIA [None]
  - NEONATAL RESPIRATORY DISTRESS SYNDROME [None]
  - PREMATURE BABY [None]
  - SYNDACTYLY [None]
  - TALIPES [None]
